FAERS Safety Report 19728760 (Version 1)
Quarter: 2021Q3

REPORT INFORMATION
  Report Type: Spontaneous
  Country: CA (occurrence: CA)
  Receive Date: 20210820
  Receipt Date: 20210820
  Transmission Date: 20211014
  Serious: Yes (Life-Threatening, Hospitalization, Other)
  Sender: FDA-Public Use
  Company Number: CA-AMNEAL PHARMACEUTICALS-2021-AMRX-03238

PATIENT
  Age: 47 Year
  Sex: Female
  Weight: 56.4 kg

DRUGS (3)
  1. PIPTAZONE [Concomitant]
     Active Substance: PIPERACILLIN SODIUM\TAZOBACTAM SODIUM
     Indication: PRODUCT USED FOR UNKNOWN INDICATION
     Dosage: UNK
     Route: 065
     Dates: start: 20210628, end: 20210714
  2. IVERMECTIN. [Concomitant]
     Active Substance: IVERMECTIN
     Indication: STRONGYLOIDIASIS
     Dosage: UNK
     Route: 065
     Dates: start: 20210626, end: 20210712
  3. ALBENZA [Suspect]
     Active Substance: ALBENDAZOLE
     Indication: STRONGYLOIDIASIS
     Dosage: 400 MILLIGRAM, BID
     Route: 048
     Dates: start: 20210627, end: 20210703

REACTIONS (3)
  - Shock haemorrhagic [Recovering/Resolving]
  - Condition aggravated [Recovering/Resolving]
  - Megacolon [Recovering/Resolving]

NARRATIVE: CASE EVENT DATE: 20210630
